FAERS Safety Report 17264161 (Version 1)
Quarter: 2020Q1

REPORT INFORMATION
  Report Type: Spontaneous
  Country: GB (occurrence: GB)
  Receive Date: 20200113
  Receipt Date: 20200113
  Transmission Date: 20200409
  Serious: Yes (Other)
  Sender: FDA-Public Use
  Company Number: GB-ALLERGAN-2001297US

PATIENT
  Sex: Female

DRUGS (2)
  1. NEDITOL [Suspect]
     Active Substance: TOLTERODINE
     Indication: HYPERTONIC BLADDER
     Dosage: 4 MG
  2. OXYBUTYNIN PCH - BP [Suspect]
     Active Substance: OXYBUTYNIN
     Indication: HYPERTONIC BLADDER
     Dosage: UNK

REACTIONS (1)
  - Glaucoma [Recovered/Resolved]

NARRATIVE: CASE EVENT DATE: 201906
